FAERS Safety Report 8682230 (Version 2)
Quarter: 2012Q4

REPORT INFORMATION
  Report Type: 
  Country: US (occurrence: US)
  Receive Date: 20120725
  Receipt Date: 20120923
  Transmission Date: 20130627
  Serious: No
  Sender: FDA-Public Use
  Company Number: US-009507513-1207USA008787

PATIENT

DRUGS (5)
  1. PEGINTRON [Suspect]
     Indication: HEPATITIS C
     Dosage: 150 Microgram, qw
     Route: 058
     Dates: start: 2012
  2. PEGINTRON [Suspect]
     Dosage: 150 mg, UNK
     Route: 058
     Dates: start: 20120805
  3. TELAPREVIR [Concomitant]
     Indication: HEPATITIS C
     Dosage: 400 mg, tid
     Route: 048
  4. RIBASPHERE [Concomitant]
     Indication: HEPATITIS C
     Dosage: UNK mg, UNK
  5. RIBASPHERE [Concomitant]
     Dosage: 1000 UNK, UNK
     Route: 048
     Dates: start: 20120801

REACTIONS (4)
  - Rectal haemorrhage [Unknown]
  - Anorectal discomfort [Unknown]
  - Perineal pain [Recovered/Resolved]
  - Haemorrhoidal haemorrhage [Recovered/Resolved]
